FAERS Safety Report 4273189-5 (Version None)
Quarter: 2004Q1

REPORT INFORMATION
  Report Type: 
  Country: None (occurrence: None)
  Receive Date: 20040116
  Receipt Date: 20030926
  Transmission Date: 20041129
  Serious: Yes (Other)
  Sender: FDA-Public Use
  Company Number: PHRM2003FR02561

PATIENT
  Sex: Female

DRUGS (2)
  1. PARLODEL [Suspect]
     Route: 048
  2. ALDOMET [Suspect]
     Indication: HYPERTENSION

REACTIONS (1)
  - FACIAL PALSY [None]
